FAERS Safety Report 7880871-7 (Version None)
Quarter: 2011Q4

REPORT INFORMATION
  Report Type: 
  Country: None (occurrence: None)
  Receive Date: 20111101
  Receipt Date: 20111017
  Transmission Date: 20120403
  Serious: Yes (Other)
  Sender: FDA-Public Use
  Company Number: JP-WATSON-2011-17608

PATIENT
  Age: 80 Year
  Sex: Female

DRUGS (5)
  1. FLUOROURACIL [Suspect]
     Indication: RECTAL CANCER RECURRENT
     Dosage: 400 MG/BODY (BOLUS)
     Route: 065
  2. BEVACIZUMAB [Suspect]
     Indication: RECTAL CANCER RECURRENT
     Dosage: UNK
     Route: 065
  3. LEUCOVORIN CALCIUM [Suspect]
     Indication: RECTAL CANCER RECURRENT
     Dosage: 225 MG/BODY
  4. FLUOROURACIL [Suspect]
     Dosage: 2400 MG/BODY (INFUSION)
     Route: 065
  5. OXALIPLATIN [Suspect]
     Indication: RECTAL CANCER RECURRENT
     Dosage: 75 MG/BODY
     Route: 065

REACTIONS (6)
  - NEUTROPENIA [None]
  - NEUROLOGICAL SYMPTOM [None]
  - CONDITION AGGRAVATED [None]
  - LEUKOPENIA [None]
  - PROTEINURIA [None]
  - HYPOAESTHESIA [None]
